FAERS Safety Report 5067543-1 (Version None)
Quarter: 2006Q3

REPORT INFORMATION
  Report Type: 
  Country: None (occurrence: None)
  Receive Date: 20060727
  Receipt Date: 20060717
  Transmission Date: 20061208
  Serious: Yes (Hospitalization)
  Sender: FDA-Public Use
  Company Number: 2006087754

PATIENT
  Age: 45 Year
  Sex: Female

DRUGS (4)
  1. MINOXIDIL [Suspect]
     Dosage: TOPICAL
     Route: 061
     Dates: start: 20040101
  2. PANTOR (AMINOBENZOIC ACID, CALCIUM PANTOTHENATE, CYSTINE, KERATIN, SAC [Concomitant]
  3. DIANE (CYPROTERONE ACETATE, ETHINYLESTRADIOL) [Concomitant]
  4. LAMOTRIGINE [Concomitant]

REACTIONS (2)
  - LIVER DISORDER [None]
  - TRANSAMINASES INCREASED [None]
